FAERS Safety Report 5082586-X (Version None)
Quarter: 2006Q3

REPORT INFORMATION
  Report Type: 
  Country: None (occurrence: None)
  Receive Date: 20060814
  Receipt Date: 20060801
  Transmission Date: 20061208
  Serious: Yes (Other)
  Sender: FDA-Public Use
  Company Number: 2006-08-0145

PATIENT
  Sex: Female

DRUGS (3)
  1. NASONEX [Suspect]
     Indication: NASAL SEPTUM DEVIATION
     Dosage: NASAL SPRAY
     Route: 045
  2. ALBUTEROL SULFATE AUTOHALER [Suspect]
  3. AFRIN (PSEUDOEPHEDRINE SULFATE) [Concomitant]

REACTIONS (7)
  - ANXIETY [None]
  - COELIAC DISEASE [None]
  - DIVERTICULITIS [None]
  - IRRITABLE BOWEL SYNDROME [None]
  - PAIN [None]
  - ROAD TRAFFIC ACCIDENT [None]
  - STRESS [None]
